FAERS Safety Report 24997610 (Version 1)
Quarter: 2025Q1

REPORT INFORMATION
  Report Type: Spontaneous
  Country: US (occurrence: US)
  Receive Date: 20250222
  Receipt Date: 20250222
  Transmission Date: 20250409
  Serious: Yes (Death, Hospitalization, Other)
  Sender: NOVITIUM PHARMA
  Company Number: US-NOVITIUMPHARMA-2025USNVP00404

PATIENT
  Age: 80 Year
  Sex: Male

DRUGS (9)
  1. PREDNISONE [Suspect]
     Active Substance: PREDNISONE
     Indication: Myasthenia gravis
     Route: 048
  2. PEMBROLIZUMAB [Concomitant]
     Active Substance: PEMBROLIZUMAB
     Indication: Bladder transitional cell carcinoma
     Dates: start: 2022
  3. METHYLPREDNISOLONE [Concomitant]
     Active Substance: METHYLPREDNISOLONE
     Indication: Myasthenia gravis
     Route: 042
  4. CEFPODOXIME [Concomitant]
     Active Substance: CEFPODOXIME
     Indication: Prophylaxis
  5. ECULIZUMAB [Concomitant]
     Active Substance: ECULIZUMAB
     Indication: Myasthenia gravis
     Route: 042
  6. ECULIZUMAB [Concomitant]
     Active Substance: ECULIZUMAB
  7. ECULIZUMAB [Concomitant]
     Active Substance: ECULIZUMAB
  8. RAVULIZUMAB [Concomitant]
     Active Substance: RAVULIZUMAB
     Indication: Myasthenia gravis
     Route: 042
  9. RAVULIZUMAB [Concomitant]
     Active Substance: RAVULIZUMAB

REACTIONS (4)
  - Bladder transitional cell carcinoma [Fatal]
  - Septic shock [Unknown]
  - Urinary tract infection [Unknown]
  - Myopathy [Unknown]
